FAERS Safety Report 19018322 (Version 2)
Quarter: 2021Q2

REPORT INFORMATION
  Report Type: Report from Study
  Country: US (occurrence: US)
  Receive Date: 20210317
  Receipt Date: 20210405
  Transmission Date: 20210717
  Serious: Yes (Death, Hospitalization, Other)
  Sender: FDA-Public Use
  Company Number: US-GILEAD-2021-0520130

PATIENT
  Age: 70 Year
  Sex: Male

DRUGS (21)
  1. ATORVASTATIN CALCIUM. [Concomitant]
     Active Substance: ATORVASTATIN CALCIUM
     Dosage: ATORVASTATIN CALCIUM 10 MG TABLET
  2. PROTONIX [OMEPRAZOLE] [Concomitant]
     Active Substance: OMEPRAZOLE
     Dosage: PROTONIX 20 MG TABLET DR
  3. ASPIRIN [ACETYLSALICYLIC ACID] [Concomitant]
     Active Substance: ASPIRIN
     Dosage: ASPIRIN 81 MG TAB CHEW
  4. ADVAIR HFA [Concomitant]
     Active Substance: FLUTICASONE PROPIONATE\SALMETEROL XINAFOATE
     Dosage: ADVAIR DISKUS 100?50 MCG BLST W/DEV
  5. MAGNESIUM [Concomitant]
     Active Substance: MAGNESIUM
     Dosage: MAGNESIUM 250 MG TABLET
  6. FUROSEMIDE. [Concomitant]
     Active Substance: FUROSEMIDE
     Dosage: FUROSEMIDE 20 MG TABLET
  7. DILTIAZEM. [Concomitant]
     Active Substance: DILTIAZEM
     Dosage: DILTIAZEM 12HR ER 120 MG CAP.SR 12H
  8. SINGULAIR [Concomitant]
     Active Substance: MONTELUKAST SODIUM
     Dosage: SINGULAIR 10 MG TABLET
  9. ZYRTEC [Concomitant]
     Active Substance: CETIRIZINE HYDROCHLORIDE
     Dosage: ZYRTEC 10 MG CAPSULE
  10. METFORMIN [Concomitant]
     Active Substance: METFORMIN HYDROCHLORIDE
     Dosage: METFORMIN HCL 1000 MG TABLET
  11. PROAIR HFA [Concomitant]
     Active Substance: ALBUTEROL SULFATE
     Dosage: PROAIR HFA 90 MCG HFA AER AD
  12. CALCIUM + VIT D [Concomitant]
     Active Substance: CALCIUM\VITAMIN D
     Dosage: CALCIUM + D 500MG
  13. ACETAZOLAMIDE. [Concomitant]
     Active Substance: ACETAZOLAMIDE
     Dosage: ACETAZOLAMIDE 125 MG TABLET
  14. AZTREONAM LYSINE [Suspect]
     Active Substance: AZTREONAM LYSINE
     Indication: CYSTIC FIBROSIS
     Dosage: 75 MG, TID, 28 DAYS ON AND THEN 28 DAYS OFF
     Route: 055
  15. XANAX [Concomitant]
     Active Substance: ALPRAZOLAM
     Dosage: XANAX 0.25 MG TABLET
  16. FISH OIL [Concomitant]
     Active Substance: FISH OIL
     Dosage: FISH OIL 100?150 MG CAPSULE
  17. BACTRIM [Concomitant]
     Active Substance: SULFAMETHOXAZOLE\TRIMETHOPRIM
  18. PREDNISONE. [Concomitant]
     Active Substance: PREDNISONE
     Dosage: PREDNISONE 10 MG TABLET
  19. DIGOXIN. [Concomitant]
     Active Substance: DIGOXIN
     Dosage: DIGOXIN 125 MCG TABLET
  20. SPIRIVA [Concomitant]
     Active Substance: TIOTROPIUM BROMIDE MONOHYDRATE
  21. MUCINEX [Concomitant]
     Active Substance: GUAIFENESIN
     Dosage: MUCINEX 1200 MG TAB ER 12H

REACTIONS (2)
  - Death [Fatal]
  - Cystic fibrosis [Not Recovered/Not Resolved]

NARRATIVE: CASE EVENT DATE: 20210227
